FAERS Safety Report 16697990 (Version 1)
Quarter: 2019Q3

REPORT INFORMATION
  Report Type: Spontaneous
  Country: US (occurrence: US)
  Receive Date: 20190628
  Receipt Date: 20190628
  Transmission Date: 20191004
  Serious: No
  Sender: FDA-Public Use
  Company Number: None

PATIENT
  Age: 62 Year
  Sex: Female
  Weight: 99 kg

DRUGS (1)
  1. LIDOCAINE HYDROCHLORIDE; LARYNG-O-JET KIT (LARYNGOTRACHEAL TOPICAL ANE [Suspect]
     Active Substance: LIDOCAINE HYDROCHLORIDE

REACTIONS (4)
  - Oxygen saturation decreased [None]
  - Device breakage [None]
  - Foreign body in respiratory tract [None]
  - Endotracheal intubation complication [None]

NARRATIVE: CASE EVENT DATE: 201905
